FAERS Safety Report 9850906 (Version 1)
Quarter: 2014Q1

REPORT INFORMATION
  Report Type: Spontaneous
  Country: JP (occurrence: JP)
  Receive Date: 20140128
  Receipt Date: 20140128
  Transmission Date: 20141002
  Serious: Yes (Congenital Anomaly)
  Sender: FDA-Public Use
  Company Number: JP-ASTRAZENECA-2014SE05418

PATIENT
  Age: 0 Week
  Sex: Male
  Weight: 3 kg

DRUGS (4)
  1. NEXIUM [Suspect]
     Route: 064
     Dates: start: 20130313, end: 20130316
  2. MUCOSTA [Concomitant]
     Route: 064
     Dates: start: 20130313, end: 20130316
  3. BUSCOPAN [Concomitant]
     Route: 064
     Dates: start: 20130313, end: 20130316
  4. EXCELASE [Concomitant]
     Route: 064
     Dates: start: 20130313, end: 20130316

REACTIONS (1)
  - Hypospadias [Unknown]
